FAERS Safety Report 15975307 (Version 3)
Quarter: 2019Q3

REPORT INFORMATION
  Report Type: Spontaneous
  Country: JP (occurrence: JP)
  Receive Date: 20190218
  Receipt Date: 20190919
  Transmission Date: 20191004
  Serious: Yes (Disabling)
  Sender: FDA-Public Use
  Company Number: JP-ROCHE-2267549

PATIENT
  Age: 93 Year
  Sex: Female
  Weight: 46.9 kg

DRUGS (5)
  1. LUCENTIS [Suspect]
     Active Substance: RANIBIZUMAB
     Route: 050
     Dates: start: 20190411
  2. LUCENTIS [Suspect]
     Active Substance: RANIBIZUMAB
     Route: 050
     Dates: start: 20181024
  3. LUCENTIS [Suspect]
     Active Substance: RANIBIZUMAB
     Route: 050
     Dates: start: 20190524
  4. LUCENTIS [Suspect]
     Active Substance: RANIBIZUMAB
     Indication: RETINAL VEIN OCCLUSION
     Route: 050
     Dates: start: 20180417
  5. LUCENTIS [Suspect]
     Active Substance: RANIBIZUMAB
     Route: 050
     Dates: start: 20190212

REACTIONS (6)
  - Conjunctivitis [Not Recovered/Not Resolved]
  - Vision blurred [Unknown]
  - Visual acuity reduced [Unknown]
  - Retinal artery occlusion [Not Recovered/Not Resolved]
  - Macular oedema [Unknown]
  - Retinal thickening [Unknown]

NARRATIVE: CASE EVENT DATE: 20180629
